FAERS Safety Report 19503101 (Version 1)
Quarter: 2021Q3

REPORT INFORMATION
  Report Type: Report from Study
  Country: TW (occurrence: TW)
  Receive Date: 20210707
  Receipt Date: 20210707
  Transmission Date: 20211014
  Serious: Yes (Hospitalization)
  Sender: FDA-Public Use
  Company Number: TW-JNJFOC-20210525241

PATIENT
  Age: 73 Year
  Sex: Female
  Weight: 55 kg

DRUGS (13)
  1. ATORVASTATIN [Concomitant]
     Active Substance: ATORVASTATIN
     Indication: HYPERLIPIDAEMIA
     Route: 048
     Dates: start: 20210324
  2. EXFORGE [Concomitant]
     Active Substance: AMLODIPINE BESYLATE\VALSARTAN
     Indication: ARRHYTHMIA
     Dosage: 5/160
     Route: 048
     Dates: start: 20210324
  3. NEBILET [Concomitant]
     Active Substance: NEBIVOLOL
     Indication: HYPERTENSIVE HEART DISEASE
     Route: 048
     Dates: start: 20210204
  4. NEBILET [Concomitant]
     Active Substance: NEBIVOLOL
     Indication: MITRAL VALVE DISEASE
  5. NEBILET [Concomitant]
     Active Substance: NEBIVOLOL
     Indication: ARRHYTHMIA
  6. AMIVANTAMAB. [Suspect]
     Active Substance: AMIVANTAMAB
     Indication: NON-SMALL CELL LUNG CANCER
     Route: 042
     Dates: start: 20210504
  7. DIAZEPAM(DIAPIN) [Concomitant]
     Indication: INSOMNIA
     Route: 048
     Dates: start: 20170724
  8. ROMICON?A [Concomitant]
     Indication: COUGH
     Route: 048
     Dates: start: 20210325
  9. ULTRACET (TRAMADOL,ACETAMINOPHEN) [Concomitant]
     Indication: PAIN
     Route: 048
     Dates: start: 20210422
  10. EXFORGE [Concomitant]
     Active Substance: AMLODIPINE BESYLATE\VALSARTAN
     Indication: HYPERTENSIVE HEART DISEASE
  11. EXFORGE [Concomitant]
     Active Substance: AMLODIPINE BESYLATE\VALSARTAN
     Indication: MITRAL VALVE DISEASE
  12. LAZERTINIB. [Suspect]
     Active Substance: LAZERTINIB
     Indication: NON-SMALL CELL LUNG CANCER
     Route: 048
     Dates: start: 20210504
  13. BROWN MIXTURE(ANTIMONY POTASSIUM TARTRATE;GLYCEROL;GLYCYRRHIZA GLABRA [Concomitant]
     Indication: COUGH
     Route: 048
     Dates: start: 20210422

REACTIONS (1)
  - Pyrexia [Recovered/Resolved]

NARRATIVE: CASE EVENT DATE: 20210511
